FAERS Safety Report 10614036 (Version 1)
Quarter: 2014Q4

REPORT INFORMATION
  Report Type: Spontaneous
  Country: CO (occurrence: CO)
  Receive Date: 20141128
  Receipt Date: 20141128
  Transmission Date: 20150529
  Serious: Yes (Hospitalization)
  Sender: FDA-Public Use
  Company Number: CO-009507513-1411COL011829

PATIENT
  Age: 49 Year
  Sex: Male

DRUGS (1)
  1. PEGINTRON [Suspect]
     Active Substance: PEGINTERFERON ALFA-2B
     Indication: HEPATITIS B
     Dosage: 100 MICROGRAM, QW
     Route: 058
     Dates: start: 20141006, end: 20141121

REACTIONS (2)
  - Hepatic function abnormal [Unknown]
  - Ascites [Unknown]

NARRATIVE: CASE EVENT DATE: 20141121
